FAERS Safety Report 8957099 (Version 1)
Quarter: 2012Q4

REPORT INFORMATION
  Report Type: 
  Country: US (occurrence: US)
  Receive Date: 20121210
  Receipt Date: 20121210
  Transmission Date: 20130627
  Serious: Yes (Other)
  Sender: FDA-Public Use
  Company Number: US-ASTRAZENECA-2012SE87816

PATIENT
  Age: 48 Year
  Sex: Female
  Weight: 93 kg

DRUGS (6)
  1. NEXIUM [Suspect]
     Indication: GASTROOESOPHAGEAL REFLUX DISEASE
     Route: 048
  2. NEXIUM [Suspect]
     Indication: COLITIS ULCERATIVE
     Route: 048
  3. CYMBALTA [Concomitant]
     Dates: start: 2011
  4. BUSPAR [Concomitant]
     Dates: start: 2012
  5. ROWASA [Concomitant]
  6. PANTAZOLONE [Concomitant]

REACTIONS (6)
  - Bone disorder [Not Recovered/Not Resolved]
  - Gastric haemorrhage [Not Recovered/Not Resolved]
  - Gastric polyps [Unknown]
  - Nausea [Not Recovered/Not Resolved]
  - Malaise [Unknown]
  - Drug dose omission [Unknown]
